FAERS Safety Report 13631639 (Version 1)
Quarter: 2017Q2

REPORT INFORMATION
  Report Type: Spontaneous
  Country: US (occurrence: US)
  Receive Date: 20170531
  Receipt Date: 20170531
  Transmission Date: 20170830
  Serious: No
  Sender: FDA-Public Use
  Company Number: US-ASTELLAS-1399917

PATIENT
  Age: 66 Year
  Sex: Female

DRUGS (5)
  1. TARCEVA [Suspect]
     Active Substance: ERLOTINIB HYDROCHLORIDE
     Indication: LUNG NEOPLASM MALIGNANT
     Dosage: DAILY
     Route: 048
     Dates: start: 20140422
  2. PYLERA [Concomitant]
     Active Substance: BISMUTH SUBCITRATE POTASSIUM\METRONIDAZOLE\TETRACYCLINE HYDROCHLORIDE
  3. FENTANYL. [Concomitant]
     Active Substance: FENTANYL
     Indication: PAIN
     Dosage: AS REQUIRED
     Route: 065
  4. HYDROCODONE BITARTRATE AND ACETAMINOPHEN [Concomitant]
     Active Substance: ACETAMINOPHEN\HYDROCODONE BITARTRATE
     Indication: PAIN
     Dosage: AS REQURIED
     Route: 048
  5. ENOXAPARIN [Concomitant]
     Active Substance: ENOXAPARIN
     Dosage: DAILY
     Route: 058

REACTIONS (4)
  - Acne [Unknown]
  - Nausea [Unknown]
  - Decreased appetite [Unknown]
  - Fatigue [Unknown]

NARRATIVE: CASE EVENT DATE: 20140423
